FAERS Safety Report 25647631 (Version 2)
Quarter: 2025Q3

REPORT INFORMATION
  Report Type: Spontaneous
  Country: US (occurrence: US)
  Receive Date: 20250806
  Receipt Date: 20250825
  Transmission Date: 20251021
  Serious: No
  Sender: GLAXOSMITHKLINE
  Company Number: US-GSK-US2025085035

PATIENT
  Age: 20 Year
  Sex: Female

DRUGS (1)
  1. BENLYSTA [Suspect]
     Active Substance: BELIMUMAB
     Indication: Product used for unknown indication

REACTIONS (3)
  - Haemorrhage [Recovered/Resolved]
  - Needle track marks [Unknown]
  - Product complaint [Unknown]

NARRATIVE: CASE EVENT DATE: 20250707
